FAERS Safety Report 8511477-4 (Version None)
Quarter: 2012Q2

REPORT INFORMATION
  Report Type: 
  Country: None (occurrence: None)
  Receive Date: 20120629
  Receipt Date: 20120625
  Transmission Date: 20120825
  Serious: Yes (Life-Threatening, Hospitalization)
  Sender: FDA-Public Use
  Company Number: 2011SP045082

PATIENT
  Age: 52 Year
  Sex: Male
  Weight: 58.9676 kg

DRUGS (8)
  1. TEMOZOLOMIDE [Suspect]
     Indication: ASTROCYTOMA
     Dosage: 160 MG, PO
     Route: 048
     Dates: start: 20110816, end: 20110922
  2. TEMOZOLOMIDE [Suspect]
     Indication: GLIOMA
     Dosage: 160 MG, PO
     Route: 048
     Dates: start: 20110816, end: 20110922
  3. GLEXANE [Concomitant]
  4. DEXAMETHASONE [Concomitant]
  5. KEPPRA [Concomitant]
  6. THIAMINE [Concomitant]
  7. FOLIC ACID [Concomitant]
  8. CLONAZEPAM [Concomitant]

REACTIONS (7)
  - SEPSIS [None]
  - COAGULOPATHY [None]
  - PARTIAL SEIZURES [None]
  - INTRACRANIAL PRESSURE INCREASED [None]
  - PULMONARY EMBOLISM [None]
  - CEREBRAL VENTRICLE DILATATION [None]
  - HEPATIC STEATOSIS [None]
